FAERS Safety Report 4713916-3 (Version None)
Quarter: 2005Q3

REPORT INFORMATION
  Report Type: 
  Country: None (occurrence: None)
  Receive Date: 20050713
  Receipt Date: 20050629
  Transmission Date: 20060218
  Serious: Yes (Death)
  Sender: FDA-Public Use
  Company Number: 215747

PATIENT
  Age: 56 Year
  Sex: Female

DRUGS (3)
  1. BEVACIZUMAB (BEVACIZUMAB) PWDR + SOLVENT, INFUSION SOLN, 100MG [Suspect]
     Indication: NON-SMALL CELL LUNG CANCER
     Dosage: 15 MG/KG, IV BOLUS
     Route: 040
     Dates: start: 20050602, end: 20050623
  2. PEMETREXED (PEMETREXED) [Suspect]
     Indication: NON-SMALL CELL LUNG CANCER
     Dosage: 500 MG/M2, IV BOLUS
     Route: 040
     Dates: start: 20050602, end: 20050623
  3. OXALIPLATIN (OXALIPLATIN) [Concomitant]

REACTIONS (1)
  - HAEMOPTYSIS [None]
